FAERS Safety Report 5036634-3 (Version None)
Quarter: 2006Q2

REPORT INFORMATION
  Report Type: 
  Country: None (occurrence: None)
  Receive Date: 20060616
  Receipt Date: 20060417
  Transmission Date: 20061013
  Serious: No
  Sender: FDA-Public Use
  Company Number: 2006RL000140

PATIENT
  Age: 62 Year
  Sex: Female
  Weight: 78.4723 kg

DRUGS (2)
  1. OMACOR [Suspect]
     Indication: BLOOD TRIGLYCERIDES INCREASED
     Dosage: SEE IMAGE
     Route: 047
     Dates: end: 20060401
  2. OMACOR [Suspect]
     Indication: BLOOD TRIGLYCERIDES INCREASED
     Dosage: SEE IMAGE
     Route: 047
     Dates: start: 20060401

REACTIONS (4)
  - DRUG INEFFECTIVE [None]
  - DYSGEUSIA [None]
  - ERUCTATION [None]
  - UNDERDOSE [None]
